FAERS Safety Report 6818983-9 (Version None)
Quarter: 2010Q3

REPORT INFORMATION
  Report Type: 
  Country: None (occurrence: None)
  Receive Date: 20100707
  Receipt Date: 20100629
  Transmission Date: 20110219
  Serious: Yes (Hospitalization)
  Sender: FDA-Public Use
  Company Number: FR-PURDUE-GBR-2010-0006261

PATIENT
  Sex: Male

DRUGS (10)
  1. OXYCONTIN [Suspect]
     Indication: PAIN
     Dosage: 10 MG, DAILY
     Route: 048
     Dates: end: 20100210
  2. LASILIX                            /00032601/ [Concomitant]
     Dosage: 500 MG (0.75 TABLET PER DAY), DAILY
     Route: 048
  3. KARDEGIC                           /00002703/ [Concomitant]
     Indication: MYOCARDIAL ISCHAEMIA
     Dosage: 75 MG, DAILY
     Route: 048
  4. DIFFU K [Concomitant]
     Indication: HYPOKALAEMIA
     Dosage: 2 CAPSL, DAILY
     Route: 048
     Dates: end: 20100211
  5. SIMVASTATIN [Concomitant]
     Dosage: 40 MG, DAILY
     Route: 048
  6. NITRODERM [Concomitant]
     Dosage: 10 MG, Q24H
     Route: 062
  7. RILMENIDINE [Concomitant]
     Dosage: 1 MG, DAILY
     Route: 048
     Dates: end: 20100213
  8. NAFTIDROFURYL [Concomitant]
     Dosage: 40 MG, DAILY
     Route: 048
  9. ALLOPURINOL [Concomitant]
     Dosage: 300 MG, DAILY
     Route: 048
  10. UMULINE                            /00646003/ [Concomitant]
     Indication: DIABETES MELLITUS
     Dosage: 560 IU, DAILY
     Route: 058

REACTIONS (1)
  - URINARY RETENTION [None]
